FAERS Safety Report 8536475-6 (Version None)
Quarter: 2012Q3

REPORT INFORMATION
  Report Type: 
  Country: None (occurrence: None)
  Receive Date: 20120725
  Receipt Date: 20120713
  Transmission Date: 20120928
  Serious: Yes (Other)
  Sender: FDA-Public Use
  Company Number: US-ROCHE-1082589

PATIENT
  Sex: Male

DRUGS (2)
  1. ERIVEDGE [Suspect]
     Indication: BASAL CELL CARCINOMA
     Route: 048
     Dates: start: 20120313
  2. MINOCYCLINE HCL [Concomitant]
     Route: 048

REACTIONS (13)
  - NEOPLASM [None]
  - NAUSEA [None]
  - DIARRHOEA [None]
  - ALOPECIA [None]
  - DYSGEUSIA [None]
  - TRICHORRHEXIS [None]
  - COGNITIVE DISORDER [None]
  - MUSCLE SPASMS [None]
  - FATIGUE [None]
  - ABDOMINAL DISCOMFORT [None]
  - SLEEP DISORDER [None]
  - FEEDING DISORDER [None]
  - BLOOD GLUCOSE INCREASED [None]
